FAERS Safety Report 24272425 (Version 7)
Quarter: 2025Q3

REPORT INFORMATION
  Report Type: Report from Study
  Country: CA (occurrence: CA)
  Receive Date: 20240902
  Receipt Date: 20250701
  Transmission Date: 20251020
  Serious: Yes (Other)
  Sender: TAKEDA
  Company Number: CA-TAKEDA-2017TUS020812

PATIENT
  Age: 42 Year
  Sex: Female

DRUGS (13)
  1. VEDOLIZUMAB [Suspect]
     Active Substance: VEDOLIZUMAB
     Indication: Crohn^s disease
  2. VEDOLIZUMAB [Suspect]
     Active Substance: VEDOLIZUMAB
  3. VEDOLIZUMAB [Suspect]
     Active Substance: VEDOLIZUMAB
  4. VEDOLIZUMAB [Suspect]
     Active Substance: VEDOLIZUMAB
     Dosage: 300 MILLIGRAM, Q4WEEKS
     Dates: start: 20180918
  5. VEDOLIZUMAB [Suspect]
     Active Substance: VEDOLIZUMAB
     Dosage: 300 MILLIGRAM, Q4WEEKS
     Dates: end: 20190917
  6. VEDOLIZUMAB [Suspect]
     Active Substance: VEDOLIZUMAB
  7. VEDOLIZUMAB [Suspect]
     Active Substance: VEDOLIZUMAB
  8. VEDOLIZUMAB [Suspect]
     Active Substance: VEDOLIZUMAB
  9. VEDOLIZUMAB [Suspect]
     Active Substance: VEDOLIZUMAB
  10. SKYRIZI [Concomitant]
     Active Substance: RISANKIZUMAB-RZAA
  11. APIXABAN [Concomitant]
     Active Substance: APIXABAN
  12. VITAMIN D [Concomitant]
     Active Substance: VITAMIN D NOS
  13. AMITRIPTYLINE [Concomitant]
     Active Substance: AMITRIPTYLINE

REACTIONS (11)
  - Haematochezia [Unknown]
  - Frequent bowel movements [Unknown]
  - Mucous stools [Unknown]
  - Defaecation urgency [Unknown]
  - Drug effect less than expected [Not Recovered/Not Resolved]
  - Off label use [Unknown]
  - Erythema nodosum [Unknown]
  - Heart rate increased [Unknown]
  - Arthralgia [Unknown]
  - Nasopharyngitis [Unknown]
  - Influenza [Not Recovered/Not Resolved]

NARRATIVE: CASE EVENT DATE: 20171012
